FAERS Safety Report 15889601 (Version 1)
Quarter: 2019Q1

REPORT INFORMATION
  Report Type: Spontaneous
  Country: ES (occurrence: ES)
  Receive Date: 20190130
  Receipt Date: 20190130
  Transmission Date: 20190417
  Serious: Yes (Other)
  Sender: FDA-Public Use
  Company Number: ES-ASSERTIO THERAPEUTICS, INC.-ES-2019DEP000039

PATIENT
  Age: 82 Year
  Sex: Female

DRUGS (5)
  1. CYCLOSPORINE. [Concomitant]
     Active Substance: CYCLOSPORINE
     Indication: PRODUCT USED FOR UNKNOWN INDICATION
     Dosage: UNK
  2. TOBRAMYCIN. [Concomitant]
     Active Substance: TOBRAMYCIN
     Indication: OCULAR HYPERAEMIA
     Dosage: UNK
  3. TOBRAMYCIN. [Concomitant]
     Active Substance: TOBRAMYCIN
     Indication: EYE IRRITATION
  4. DICLOFENAC POTASSIUM. [Suspect]
     Active Substance: DICLOFENAC POTASSIUM
     Indication: OCULAR HYPERAEMIA
     Dosage: UNK
  5. DICLOFENAC POTASSIUM. [Suspect]
     Active Substance: DICLOFENAC POTASSIUM
     Indication: EYE IRRITATION

REACTIONS (2)
  - Conjunctival hyperaemia [Recovering/Resolving]
  - Ulcerative keratitis [Recovered/Resolved]
